FAERS Safety Report 5481442-2 (Version None)
Quarter: 2007Q4

REPORT INFORMATION
  Report Type: 
  Country: None (occurrence: None)
  Receive Date: 20071010
  Receipt Date: 20071005
  Transmission Date: 20080405
  Serious: Yes (Other)
  Sender: FDA-Public Use
  Company Number: B0490428A

PATIENT
  Age: 29 Year
  Sex: Male

DRUGS (2)
  1. AVANDIA [Suspect]
     Indication: HEPATITIS C
     Dosage: 4MG PER DAY
     Route: 065
     Dates: start: 20070801, end: 20070901
  2. ANTIVIRAL [Concomitant]

REACTIONS (6)
  - ALANINE AMINOTRANSFERASE INCREASED [None]
  - ASPARTATE AMINOTRANSFERASE INCREASED [None]
  - BLOOD TRIGLYCERIDES INCREASED [None]
  - HIGH DENSITY LIPOPROTEIN DECREASED [None]
  - LOW DENSITY LIPOPROTEIN INCREASED [None]
  - THERAPEUTIC RESPONSE UNEXPECTED [None]
